FAERS Safety Report 24541872 (Version 2)
Quarter: 2025Q1

REPORT INFORMATION
  Report Type: Spontaneous
  Country: US (occurrence: US)
  Receive Date: 20241023
  Receipt Date: 20250101
  Transmission Date: 20250409
  Serious: Yes (Other)
  Sender: ALEXION PHARMACEUTICALS
  Company Number: US-AstraZeneca-CH-00724891A

PATIENT

DRUGS (4)
  1. STRENSIQ [Suspect]
     Active Substance: ASFOTASE ALFA
     Indication: Hypophosphatasia
  2. STRENSIQ [Suspect]
     Active Substance: ASFOTASE ALFA
     Route: 058
  3. STRENSIQ [Suspect]
     Active Substance: ASFOTASE ALFA
  4. STRENSIQ [Suspect]
     Active Substance: ASFOTASE ALFA
     Route: 058

REACTIONS (1)
  - Deafness [Not Recovered/Not Resolved]
